FAERS Safety Report 7537461-5 (Version None)
Quarter: 2011Q2

REPORT INFORMATION
  Report Type: 
  Country: None (occurrence: None)
  Receive Date: 20110609
  Receipt Date: 20110527
  Transmission Date: 20111010
  Serious: Yes (Other)
  Sender: FDA-Public Use
  Company Number: PHHY2011ES46189

PATIENT
  Age: 72 Year
  Sex: Male

DRUGS (4)
  1. HIDROALTESONA [Concomitant]
     Indication: RENAL FAILURE
     Dosage: 10 MG, QD
     Route: 048
     Dates: start: 20060101
  2. SANDIMMUNE [Suspect]
     Indication: PSORIASIS
     Dosage: 80 MG, BID
     Route: 048
     Dates: start: 20101126, end: 20101129
  3. ALLOPURINOL [Concomitant]
     Indication: HYPERURICAEMIA
     Dosage: 300 MG, QD
     Route: 048
     Dates: start: 20060101
  4. ASTONIN [Concomitant]
     Indication: RENAL FAILURE
     Dosage: 50 UG, UNK
     Route: 048
     Dates: start: 20100902

REACTIONS (2)
  - MESENTERIC PANNICULITIS [None]
  - ABDOMINAL PAIN [None]
